FAERS Safety Report 5195719-1 (Version None)
Quarter: 2007Q1

REPORT INFORMATION
  Report Type: 
  Country: None (occurrence: None)
  Receive Date: 20070102
  Receipt Date: 20061220
  Transmission Date: 20070707
  Serious: Yes (Other)
  Sender: FDA-Public Use
  Company Number: JP-ROCHE-449564

PATIENT
  Age: 68 Year
  Sex: Male

DRUGS (5)
  1. PEGASYS [Suspect]
     Route: 058
     Dates: start: 20060223, end: 20060518
  2. GLUTATHIONE [Concomitant]
     Dosage: 1-2 DROPS, 3-5 TIMES A DAY DRUG REPORTED AS NEUTHIONE (GLUTATHIONE)
     Route: 031
  3. HYALURONATE SODIUM [Concomitant]
     Dosage: DRUG REPORTED AS EYECARE (HYALURONATE SODIUM) TAKE 1 DROP, 5-6 TIMES A DAY
     Route: 031
  4. ADESTAN [Concomitant]
     Dosage: DOSAGE ADJUSTED
     Route: 061
  5. DEXAMETHASONE [Concomitant]
     Dosage: DOSAGE ADJUSTED REPORTED AS EURASON
     Route: 049
     Dates: start: 20060213

REACTIONS (8)
  - BACK PAIN [None]
  - DEMENTIA ALZHEIMER'S TYPE [None]
  - FLUSHING [None]
  - INSOMNIA [None]
  - MALAISE [None]
  - PERIODONTITIS [None]
  - PYREXIA [None]
  - STOMATITIS [None]
